FAERS Safety Report 13051735 (Version 1)
Quarter: 2016Q4

REPORT INFORMATION
  Report Type: Report from Study
  Country: US (occurrence: US)
  Receive Date: 20161221
  Receipt Date: 20161221
  Transmission Date: 20170207
  Serious: Yes (Hospitalization)
  Sender: FDA-Public Use
  Company Number: US-TEVA-721593USA

PATIENT
  Age: 31 Year
  Sex: Female

DRUGS (3)
  1. IDARUBICIN [Suspect]
     Active Substance: IDARUBICIN
     Indication: ACUTE MYELOID LEUKAEMIA
     Route: 065
  2. OMACETAXINE [Suspect]
     Active Substance: OMACETAXINE
     Indication: ACUTE MYELOID LEUKAEMIA
     Dosage: 9.8 MILLIGRAM DAILY;
     Route: 065
     Dates: start: 20160909, end: 20160916
  3. CYTARABINE. [Suspect]
     Active Substance: CYTARABINE
     Indication: ACUTE MYELOID LEUKAEMIA
     Route: 065

REACTIONS (1)
  - Febrile neutropenia [Not Recovered/Not Resolved]

NARRATIVE: CASE EVENT DATE: 20161207
